FAERS Safety Report 25420089 (Version 1)
Quarter: 2025Q2

REPORT INFORMATION
  Report Type: Spontaneous
  Country: BR (occurrence: BR)
  Receive Date: 20250610
  Receipt Date: 20250610
  Transmission Date: 20250717
  Serious: Yes (Other)
  Sender: Alora Pharma
  Company Number: BR-VERTICAL PHARMACEUTICALS-2025ALO02263

PATIENT
  Age: 73 Year
  Sex: Female

DRUGS (5)
  1. ESTRADIOL [Suspect]
     Active Substance: ESTRADIOL
     Indication: Product used for unknown indication
     Dates: start: 2000
  2. ALENDRONATE SODIUM [Suspect]
     Active Substance: ALENDRONATE SODIUM
     Indication: Product used for unknown indication
  3. CHOLECALCIFEROL\FISH OIL [Suspect]
     Active Substance: CHOLECALCIFEROL\FISH OIL
     Indication: Product used for unknown indication
  4. COLLAGEN [Suspect]
     Active Substance: COLLAGEN
     Indication: Skin disorder
  5. COLLAGEN [Suspect]
     Active Substance: COLLAGEN
     Indication: Nail disorder

REACTIONS (6)
  - Cataract [Unknown]
  - Surgery [Unknown]
  - Shoulder fracture [Unknown]
  - Pain in extremity [Unknown]
  - Oropharyngeal discomfort [Unknown]
  - Foot deformity [Unknown]

NARRATIVE: CASE EVENT DATE: 20180101
